FAERS Safety Report 10633415 (Version 1)
Quarter: 2014Q4

REPORT INFORMATION
  Report Type: Spontaneous
  Country: US (occurrence: US)
  Receive Date: 20141205
  Receipt Date: 20141205
  Transmission Date: 20150529
  Serious: No
  Sender: FDA-Public Use
  Company Number: US-BRISTOL-MYERS SQUIBB COMPANY-21663497

PATIENT
  Age: 74 Year
  Sex: Female
  Weight: 124 kg

DRUGS (10)
  1. ENBREL [Suspect]
     Active Substance: ETANERCEPT
  2. LASIX [Concomitant]
     Active Substance: FUROSEMIDE
     Indication: SWELLING
  3. PLAQUENIL [Concomitant]
     Active Substance: HYDROXYCHLOROQUINE SULFATE
     Indication: RHEUMATOID ARTHRITIS
  4. ACIPHEX [Concomitant]
     Active Substance: RABEPRAZOLE SODIUM
     Indication: GASTROOESOPHAGEAL REFLUX DISEASE
  5. CYMBALTA [Concomitant]
     Active Substance: DULOXETINE HYDROCHLORIDE
     Indication: PAIN
  6. VERAPAMIL [Concomitant]
     Active Substance: VERAPAMIL HYDROCHLORIDE
     Indication: HYPERTENSION
  7. PREDNISONE. [Concomitant]
     Active Substance: PREDNISONE
     Indication: RHEUMATOID ARTHRITIS
  8. ORENCIA [Suspect]
     Active Substance: ABATACEPT
  9. OXYCONTIN [Concomitant]
     Active Substance: OXYCODONE HYDROCHLORIDE
     Indication: PAIN
  10. RAMIPRIL. [Concomitant]
     Active Substance: RAMIPRIL

REACTIONS (5)
  - Rash [Unknown]
  - Headache [Unknown]
  - Weight decreased [Unknown]
  - Abdominal pain upper [Unknown]
  - Tendon rupture [Unknown]
